FAERS Safety Report 4443158-0 (Version None)
Quarter: 2004Q3

REPORT INFORMATION
  Report Type: 
  Country: None (occurrence: None)
  Receive Date: 20040907
  Receipt Date: 20040907
  Transmission Date: 20050211
  Serious: No
  Sender: FDA-Public Use
  Company Number: None

PATIENT
  Age: 37 Year
  Sex: Female

DRUGS (1)
  1. METOCLOPRAMIDE [Suspect]
     Indication: LACTATION DISORDER
     Dosage: 10 MG Q6H ORAL
     Route: 048
     Dates: start: 20040504, end: 20040505

REACTIONS (4)
  - DYSPNOEA [None]
  - MUSCULAR WEAKNESS [None]
  - RESTLESSNESS [None]
  - SWOLLEN TONGUE [None]
